FAERS Safety Report 10186014 (Version 2)
Quarter: 2014Q3

REPORT INFORMATION
  Report Type: Report from Study
  Country: US (occurrence: US)
  Receive Date: 20140521
  Receipt Date: 20140715
  Transmission Date: 20150326
  Serious: Yes (Hospitalization, Other)
  Sender: FDA-Public Use
  Company Number: US-BRISTOL-MYERS SQUIBB COMPANY-20732533

PATIENT
  Age: 48 Year
  Sex: Female
  Weight: 80.3 kg

DRUGS (9)
  1. PROTONIX [Concomitant]
     Active Substance: PANTOPRAZOLE SODIUM
     Route: 048
     Dates: start: 20140311
  2. VALCYTE [Concomitant]
     Active Substance: VALGANCICLOVIR HYDROCHLORIDE
     Dates: start: 20140311
  3. NULOJIX [Suspect]
     Active Substance: BELATACEPT
     Indication: RENAL TRANSPLANT
     Dosage: LAST DOSE 6MAR14?11MAR14,15MAR14,26MAR14,8APR14
     Route: 042
     Dates: start: 20140306
  4. SENNOSIDE [Concomitant]
     Active Substance: SENNOSIDES
     Dates: start: 20140311
  5. CELLCEPT [Suspect]
     Active Substance: MYCOPHENOLATE MOFETIL\MYCOPHENOLATE MOFETIL HYDROCHLORIDE
     Indication: RENAL TRANSPLANT
     Route: 048
     Dates: start: 20140311
  6. DRISDOL [Concomitant]
     Active Substance: ERGOCALCIFEROL
     Dosage: 1 DF=50000 UNITS
     Dates: start: 20140326
  7. COLACE [Concomitant]
     Active Substance: DOCUSATE SODIUM
     Dates: start: 20140311
  8. BACTRIM [Concomitant]
     Active Substance: SULFAMETHOXAZOLE\TRIMETHOPRIM
     Dosage: 1 DF=400-80 MG
     Dates: start: 20140311
  9. CLOTRIMAZOLE. [Concomitant]
     Active Substance: CLOTRIMAZOLE
     Dates: start: 20140311

REACTIONS (4)
  - Vertigo [Recovered/Resolved]
  - Cerebral amyloid angiopathy [Unknown]
  - Urinary tract infection [Recovered/Resolved]
  - Diplopia [Recovered/Resolved]

NARRATIVE: CASE EVENT DATE: 201404
